FAERS Safety Report 23088241 (Version 6)
Quarter: 2023Q4

REPORT INFORMATION
  Report Type: Other
  Country: CA (occurrence: None)
  Receive Date: 20231020
  Receipt Date: 20231114
  Transmission Date: 20240109
  Serious: No
  Sender: FDA-Public Use
  Company Number: CA-ROCHE-3443133

PATIENT
  Sex: Male

DRUGS (2)
  1. OCREVUS [Suspect]
     Active Substance: OCRELIZUMAB
     Indication: Relapsing-remitting multiple sclerosis
     Dosage: 300 MG AT DAY 0 AND 14, THEN 600 MG EVERY 6 MONTH
     Route: 042
     Dates: start: 20210205
  2. CARBAMAZEPINE [Concomitant]
     Active Substance: CARBAMAZEPINE
     Dosage: TWICE DAILY

REACTIONS (3)
  - Influenza [Unknown]
  - COVID-19 [Unknown]
  - Rhinorrhoea [Unknown]
